FAERS Safety Report 6603096-1 (Version None)
Quarter: 2010Q1

REPORT INFORMATION
  Report Type: 
  Country: None (occurrence: None)
  Receive Date: 20100226
  Receipt Date: 20100217
  Transmission Date: 20100710
  Serious: Yes (Other)
  Sender: FDA-Public Use
  Company Number: CA-PFIZER INC-2010021582

PATIENT
  Sex: Male

DRUGS (4)
  1. NORVASC [Suspect]
     Dosage: 2.5 MG, UNK
     Dates: start: 20090601, end: 20090901
  2. NORVASC [Suspect]
     Dosage: 5 MG, UNK
     Dates: start: 20100201, end: 20100218
  3. TENORETIC 100 [Concomitant]
     Dosage: 50/25
     Dates: end: 20100117
  4. PREVACID [Concomitant]
     Indication: ABDOMINAL DISCOMFORT
     Dosage: 30 MG, UNK

REACTIONS (1)
  - GOUT [None]
